FAERS Safety Report 25213890 (Version 1)
Quarter: 2025Q2

REPORT INFORMATION
  Report Type: Spontaneous
  Country: US (occurrence: None)
  Receive Date: 20250418
  Receipt Date: 20250418
  Transmission Date: 20250716
  Serious: Yes (Hospitalization)
  Sender: FDA-CTU
  Company Number: None

PATIENT
  Age: 60 Year
  Sex: Male
  Weight: 86 kg

DRUGS (1)
  1. CYTARABINE\DAUNORUBICIN [Suspect]
     Active Substance: CYTARABINE\DAUNORUBICIN
     Dates: end: 20240813

REACTIONS (8)
  - Neutropenia [None]
  - Thrombocytopenia [None]
  - Enterobacter infection [None]
  - Anaemia [None]
  - Seizure [None]
  - Coma [None]
  - Cardiac arrest [None]
  - Lymphopenia [None]

NARRATIVE: CASE EVENT DATE: 20240919
